FAERS Safety Report 7715861-8 (Version None)
Quarter: 2011Q3

REPORT INFORMATION
  Report Type: 
  Country: None (occurrence: None)
  Receive Date: 20110829
  Receipt Date: 20110829
  Transmission Date: 20111222
  Serious: No
  Sender: FDA-Public Use
  Company Number: None

PATIENT
  Age: 58 Year
  Sex: Male
  Weight: 95.254 kg

DRUGS (1)
  1. LOVAZA [Suspect]
     Indication: BLOOD TRIGLYCERIDES INCREASED
     Dates: start: 20110315, end: 20110826

REACTIONS (3)
  - CONDITION AGGRAVATED [None]
  - MENIERE'S DISEASE [None]
  - DEAFNESS [None]
